FAERS Safety Report 7800081-9 (Version None)
Quarter: 2011Q4

REPORT INFORMATION
  Report Type: 
  Country: None (occurrence: None)
  Receive Date: 20111004
  Receipt Date: 20110927
  Transmission Date: 20120403
  Serious: Yes (Hospitalization)
  Sender: FDA-Public Use
  Company Number: 2011SP020444

PATIENT
  Age: 70 Year
  Sex: Male

DRUGS (9)
  1. BUMETANIDE [Suspect]
     Indication: PRODUCT USED FOR UNKNOWN INDICATION
     Dosage: ;IV
     Route: 042
     Dates: start: 20101030, end: 20101103
  2. EUPRESSYL (URAPIDIL) [Suspect]
     Indication: PRODUCT USED FOR UNKNOWN INDICATION
     Dosage: ;IV
     Route: 042
     Dates: start: 20101014, end: 20101121
  3. CLAVENTIN (CLAVENTIN /00973701/) [Suspect]
     Indication: PRODUCT USED FOR UNKNOWN INDICATION
     Dosage: 10 GM;   ;IV
     Route: 042
     Dates: start: 20101029, end: 20101112
  4. DORIBAX [Suspect]
     Indication: PRODUCT USED FOR UNKNOWN INDICATION
     Dosage: 1 GM;QD;PO
     Route: 048
     Dates: start: 20101115, end: 20101126
  5. ORGARAN [Suspect]
     Dosage: ; SC
     Route: 058
     Dates: start: 20101025, end: 20110126
  6. ALPRAZOLAM [Suspect]
     Indication: PRODUCT USED FOR UNKNOWN INDICATION
     Dosage: 0.25 MG; QD;PO
     Route: 048
     Dates: start: 20101115, end: 20101206
  7. BACTRIM [Suspect]
     Indication: PRODUCT USED FOR UNKNOWN INDICATION
     Dosage: 400 MG;  ;IV
     Route: 042
     Dates: start: 20101029, end: 20101106
  8. ALDOMET [Suspect]
     Indication: PRODUCT USED FOR UNKNOWN INDICATION
     Dosage: ;PO
     Route: 048
     Dates: start: 20101115, end: 20110110
  9. FUROSEMIDE [Suspect]
     Indication: PRODUCT USED FOR UNKNOWN INDICATION
     Dosage: ;PO
     Route: 048
     Dates: start: 20101014, end: 20110117

REACTIONS (2)
  - DRUG RASH WITH EOSINOPHILIA AND SYSTEMIC SYMPTOMS [None]
  - BRONCHOSPASM [None]
